FAERS Safety Report 20747809 (Version 2)
Quarter: 2023Q2

REPORT INFORMATION
  Report Type: Spontaneous
  Country: LV (occurrence: LV)
  Receive Date: 20220425
  Receipt Date: 20230522
  Transmission Date: 20230722
  Serious: Yes (Hospitalization, Other)
  Sender: FDA-Public Use
  Company Number: LV-009507513-2204LVA008212

PATIENT
  Age: 76 Year
  Sex: Male

DRUGS (1)
  1. PEMBROLIZUMAB [Suspect]
     Active Substance: PEMBROLIZUMAB
     Indication: Metastatic malignant melanoma
     Dosage: UNK
     Dates: start: 20210211, end: 20210909

REACTIONS (7)
  - COVID-19 [Unknown]
  - Staphylococcal sepsis [Unknown]
  - Gangrene [Unknown]
  - Dermatitis bullous [Unknown]
  - Colitis [Unknown]
  - Peripheral arterial occlusive disease [Unknown]
  - Condition aggravated [Unknown]

NARRATIVE: CASE EVENT DATE: 20211001
